FAERS Safety Report 17068562 (Version 1)
Quarter: 2019Q4

REPORT INFORMATION
  Report Type: Spontaneous
  Country: US (occurrence: US)
  Receive Date: 20191123
  Receipt Date: 20191123
  Transmission Date: 20200122
  Serious: No
  Sender: FDA-Public Use
  Company Number: US-PURDUE-USA-2018-0145483

PATIENT
  Sex: Female

DRUGS (2)
  1. HYSINGLA ER [Suspect]
     Active Substance: HYDROCODONE BITARTRATE
     Indication: NECK PAIN
     Dosage: 20 MG, Q24H
     Route: 048
     Dates: start: 201811
  2. HYSINGLA ER [Suspect]
     Active Substance: HYDROCODONE BITARTRATE
     Indication: BACK PAIN

REACTIONS (1)
  - Nasopharyngitis [Not Recovered/Not Resolved]
